FAERS Safety Report 5091346-5 (Version None)
Quarter: 2006Q3

REPORT INFORMATION
  Report Type: 
  Country: None (occurrence: None)
  Receive Date: 20060824
  Receipt Date: 20060809
  Transmission Date: 20061208
  Serious: Yes (Hospitalization)
  Sender: FDA-Public Use
  Company Number: CLOF-10309

PATIENT
  Age: 6 Year
  Sex: Female
  Weight: 21.3 kg

DRUGS (11)
  1. CLOFARABINE [Suspect]
     Indication: ACUTE LYMPHOCYTIC LEUKAEMIA RECURRENT
     Dosage: 17 MG QD X 5; IV
     Route: 042
     Dates: start: 20060720, end: 20060724
  2. ETOPOSIDE [Suspect]
     Indication: ACUTE LYMPHOCYTIC LEUKAEMIA RECURRENT
     Dosage: 63 MG QD X 5; IV
     Route: 042
     Dates: start: 20060720, end: 20060724
  3. CYCLOPHOSPHAMIDE [Suspect]
     Indication: ACUTE LYMPHOCYTIC LEUKAEMIA RECURRENT
     Dosage: 375 MG QD X 5; IV
     Route: 042
     Dates: start: 20060720, end: 20060724
  4. MORPHINE [Concomitant]
  5. DIPHENHYDRAMINE [Concomitant]
  6. ACETAMINOPHEN [Concomitant]
  7. REGULAR INSULIN [Concomitant]
  8. FAMOTIDINE [Concomitant]
  9. NEUPOGEN [Concomitant]
  10. ESOMEPRAZOLE MAGNESIUM [Concomitant]
  11. TPN [Concomitant]

REACTIONS (34)
  - ANGIOPATHY [None]
  - ASCITES [None]
  - BLADDER DISORDER [None]
  - BLOOD AMYLASE INCREASED [None]
  - BLOOD URINE PRESENT [None]
  - COLITIS [None]
  - COMPUTERISED TOMOGRAM ABNORMAL [None]
  - CYSTITIS [None]
  - EJECTION FRACTION DECREASED [None]
  - FIBRIN D DIMER INCREASED [None]
  - GASTROINTESTINAL INFLAMMATION [None]
  - GASTROINTESTINAL OEDEMA [None]
  - GENERALISED OEDEMA [None]
  - HAEMOGLOBIN DECREASED [None]
  - HALLUCINATION [None]
  - HEPATOSPLENOMEGALY [None]
  - HYPERGLYCAEMIA [None]
  - HYPOXIA [None]
  - LIPASE INCREASED [None]
  - LIVER DISORDER [None]
  - LUNG CONSOLIDATION [None]
  - LUNG INFILTRATION [None]
  - LYMPHADENOPATHY [None]
  - METABOLIC ACIDOSIS [None]
  - NEUTROPHIL COUNT DECREASED [None]
  - PAIN [None]
  - PERICARDIAL EFFUSION [None]
  - PLATELET COUNT DECREASED [None]
  - PLEURAL EFFUSION [None]
  - PYREXIA [None]
  - RED BLOOD CELL COUNT DECREASED [None]
  - TACHYPNOEA [None]
  - VEIN DISCOLOURATION [None]
  - WHITE BLOOD CELL COUNT DECREASED [None]
